FAERS Safety Report 7742336-2 (Version None)
Quarter: 2011Q3

REPORT INFORMATION
  Report Type: 
  Country: None (occurrence: None)
  Receive Date: 20110907
  Receipt Date: 20110907
  Transmission Date: 20111222
  Serious: Yes (Other)
  Sender: FDA-Public Use
  Company Number: None

PATIENT
  Sex: Male

DRUGS (1)
  1. TIKOSYN [Suspect]
     Indication: ATRIAL FIBRILLATION
     Dosage: 500MCG TWICE DAILY ORALLY
     Route: 048
     Dates: start: 20101105, end: 20110826

REACTIONS (1)
  - VENTRICULAR EXTRASYSTOLES [None]
